FAERS Safety Report 7972247-9 (Version None)
Quarter: 2011Q4

REPORT INFORMATION
  Report Type: 
  Country: None (occurrence: None)
  Receive Date: 20111213
  Receipt Date: 20111205
  Transmission Date: 20120403
  Serious: Yes (Death, Hospitalization)
  Sender: FDA-Public Use
  Company Number: US-BIOGENIDEC-2011BI046146

PATIENT
  Age: 85 Year
  Sex: Female

DRUGS (3)
  1. AVONEX [Suspect]
     Route: 030
     Dates: start: 19960901, end: 20010801
  2. AVONEX [Suspect]
     Route: 030
     Dates: start: 20030301, end: 20030801
  3. AVONEX [Suspect]
     Indication: MULTIPLE SCLEROSIS
     Route: 030
     Dates: start: 20030801, end: 20110101

REACTIONS (1)
  - CARDIAC FAILURE CONGESTIVE [None]
